FAERS Safety Report 4700403-1 (Version None)
Quarter: 2005Q2

REPORT INFORMATION
  Report Type: 
  Country: None (occurrence: None)
  Receive Date: 20050627
  Receipt Date: 20040427
  Transmission Date: 20051028
  Serious: Yes (Other)
  Sender: FDA-Public Use
  Company Number: US-ROCHE-365858

PATIENT
  Age: 19 Year
  Sex: Male

DRUGS (3)
  1. ACCUTANE [Suspect]
     Indication: PSORIASIS
     Route: 048
     Dates: start: 20021015, end: 20031015
  2. CORTICOSTEROIDS [Concomitant]
     Indication: PSORIASIS
     Route: 048
  3. ANTIDEPRESSANTS [Concomitant]
     Indication: PSORIASIS
     Route: 048

REACTIONS (2)
  - ALOPECIA [None]
  - BIPOLAR DISORDER [None]
